FAERS Safety Report 5957349-0 (Version None)
Quarter: 2008Q4

REPORT INFORMATION
  Report Type: 
  Country: None (occurrence: None)
  Receive Date: 20081114
  Receipt Date: 20081103
  Transmission Date: 20090506
  Serious: Yes (Other)
  Sender: FDA-Public Use
  Company Number: 100#08#2008-05572

PATIENT
  Sex: Female

DRUGS (2)
  1. RISPERDAL [Suspect]
     Indication: SCHIZOPHRENIA
  2. OLANZAPINE [Suspect]
     Indication: SCHIZOPHRENIA

REACTIONS (2)
  - NERVOUS SYSTEM DISORDER [None]
  - WEIGHT INCREASED [None]
